FAERS Safety Report 9146875 (Version 2)
Quarter: 2013Q2

REPORT INFORMATION
  Report Type: Spontaneous
  Country: JP (occurrence: JP)
  Receive Date: 20130307
  Receipt Date: 20130418
  Transmission Date: 20140414
  Serious: Yes (Hospitalization, Other)
  Sender: FDA-Public Use
  Company Number: JP-ROCHE-1198190

PATIENT
  Age: 63 Year
  Sex: Female
  Weight: 70 kg

DRUGS (4)
  1. AVASTIN [Suspect]
     Indication: BREAST CANCER METASTATIC
     Route: 041
     Dates: start: 20121119, end: 20130204
  2. DECADRON [Suspect]
     Indication: INTRACRANIAL PRESSURE INCREASED
     Route: 048
     Dates: start: 20121022
  3. PACLITAXEL [Concomitant]
     Indication: BREAST CANCER METASTATIC
     Route: 041
     Dates: start: 20121119, end: 20130204
  4. BLOPRESS [Concomitant]
     Indication: HYPERTENSION
     Route: 048

REACTIONS (3)
  - Skin exfoliation [Recovered/Resolved]
  - Skin atrophy [Unknown]
  - Infection [Unknown]
